FAERS Safety Report 18799922 (Version 3)
Quarter: 2021Q1

REPORT INFORMATION
  Report Type: Report from Study
  Country: US (occurrence: US)
  Receive Date: 20210128
  Receipt Date: 20210211
  Transmission Date: 20210419
  Serious: Yes (Hospitalization, Other)
  Sender: FDA-Public Use
  Company Number: US-BIOVITRUM-2021US0705

PATIENT
  Sex: Male

DRUGS (1)
  1. ORFADIN [Suspect]
     Active Substance: NITISINONE
     Indication: TYROSINAEMIA
     Route: 048
     Dates: start: 20140409

REACTIONS (7)
  - Porphyria [Recovering/Resolving]
  - Testicular pain [Unknown]
  - Eye irritation [Unknown]
  - Abdominal pain [Recovering/Resolving]
  - Testicular torsion [Unknown]
  - Hypertension [Unknown]
  - Treatment noncompliance [Unknown]
